FAERS Safety Report 9251574 (Version 1)
Quarter: 2013Q2

REPORT INFORMATION
  Report Type: Spontaneous
  Country: PY (occurrence: PY)
  Receive Date: 20130424
  Receipt Date: 20130424
  Transmission Date: 20140414
  Serious: Yes (Other)
  Sender: FDA-Public Use
  Company Number: PY-PFIZER INC-2013123529

PATIENT
  Age: 60 Year
  Sex: Male

DRUGS (1)
  1. SUTENT [Suspect]
     Indication: RENAL CANCER
     Dosage: UNK

REACTIONS (7)
  - Haemorrhage [Recovering/Resolving]
  - Immobile [Recovering/Resolving]
  - Hallucination [Recovering/Resolving]
  - Aphasia [Recovering/Resolving]
  - Anaemia [Recovering/Resolving]
  - Disease progression [Recovering/Resolving]
  - Renal cancer [Recovering/Resolving]
